FAERS Safety Report 8835555 (Version 4)
Quarter: 2013Q1

REPORT INFORMATION
  Report Type: Spontaneous
  Country: SE (occurrence: SE)
  Receive Date: 20121011
  Receipt Date: 20130314
  Transmission Date: 20140127
  Serious: Yes (Death, Other)
  Sender: FDA-Public Use
  Company Number: SE-PFIZER INC-2012251005

PATIENT
  Age: 37 Year
  Sex: Female

DRUGS (6)
  1. LYRICA [Suspect]
     Dosage: 50 MG, UNK
  2. LYRICA [Suspect]
     Dosage: 300 MG, DAILY
     Dates: start: 201110, end: 201208
  3. IMOVANE [Suspect]
     Dosage: UNK
  4. PROPAVAN [Suspect]
     Dosage: UNK
  5. LAMICTAL [Suspect]
     Dosage: UNK
  6. METHADONE [Suspect]

REACTIONS (5)
  - Respiratory depression [Fatal]
  - Brain hypoxia [Fatal]
  - Dyspnoea [Unknown]
  - Drug abuser [Unknown]
  - Cardiac disorder [Unknown]
